FAERS Safety Report 7009333-6 (Version None)
Quarter: 2010Q3

REPORT INFORMATION
  Report Type: 
  Country: None (occurrence: None)
  Receive Date: 20100921
  Receipt Date: 20100916
  Transmission Date: 20110219
  Serious: Yes (Death)
  Sender: FDA-Public Use
  Company Number: 2010US003801

PATIENT
  Age: 27 Year
  Sex: Male
  Weight: 82 kg

DRUGS (5)
  1. PROGRAF [Suspect]
     Indication: BONE MARROW TRANSPLANT
     Dates: end: 20100908
  2. LEVAQUIN [Concomitant]
  3. CELLCEPT [Concomitant]
  4. VALCYTE [Concomitant]
  5. NOXAFIL [Concomitant]

REACTIONS (1)
  - DEATH [None]
